FAERS Safety Report 4869738-6 (Version None)
Quarter: 2005Q4

REPORT INFORMATION
  Report Type: 
  Country: None (occurrence: None)
  Receive Date: 20051223
  Receipt Date: 20051208
  Transmission Date: 20060501
  Serious: Yes (Hospitalization)
  Sender: FDA-Public Use
  Company Number: US200512000318

PATIENT
  Age: 57 Year
  Sex: Male

DRUGS (3)
  1. HUMATROPE [Suspect]
     Indication: HORMONE REPLACEMENT THERAPY
     Dates: start: 19990101
  2. PREDNISONE [Concomitant]
  3. SYNTHROID [Concomitant]

REACTIONS (2)
  - CONFUSIONAL STATE [None]
  - DISORIENTATION [None]
